FAERS Safety Report 15797603 (Version 1)
Quarter: 2019Q1

REPORT INFORMATION
  Report Type: Spontaneous
  Country: DK (occurrence: DK)
  Receive Date: 20190108
  Receipt Date: 20190108
  Transmission Date: 20190417
  Serious: Yes (Other)
  Sender: FDA-Public Use
  Company Number: DK-BAYER-2019-004982

PATIENT
  Age: 30 Year
  Sex: Female

DRUGS (1)
  1. MIRENA [Suspect]
     Active Substance: LEVONORGESTREL
     Indication: MENORRHAGIA
     Dosage: 20 MCG/24HR, CONT
     Route: 015
     Dates: start: 20050404, end: 20151215

REACTIONS (17)
  - Syncope [Unknown]
  - Depression [Recovered/Resolved]
  - Tension [Unknown]
  - Limb injury [Unknown]
  - Stress [Unknown]
  - Psychiatric symptom [Unknown]
  - Palpitations [Recovered/Resolved]
  - Joint dislocation [Recovered/Resolved]
  - Panic attack [Recovered/Resolved]
  - Hyperventilation [Recovered/Resolved]
  - Epilepsy [Unknown]
  - Depressed mood [Recovered/Resolved]
  - Fall [Recovered/Resolved]
  - Nervousness [Unknown]
  - Shoulder operation [Recovered/Resolved]
  - Personality change [Unknown]
  - Anxiety [Recovered/Resolved]

NARRATIVE: CASE EVENT DATE: 2005
